FAERS Safety Report 14583126 (Version 1)
Quarter: 2018Q1

REPORT INFORMATION
  Report Type: Spontaneous
  Country: GB (occurrence: GB)
  Receive Date: 20180228
  Receipt Date: 20180228
  Transmission Date: 20180509
  Serious: Yes (Other)
  Sender: FDA-Public Use
  Company Number: GB-TEVA-2018-GB-862659

PATIENT
  Age: 41 Year
  Sex: Female
  Weight: 77.56 kg

DRUGS (2)
  1. AMOXICILLIN. [Suspect]
     Active Substance: AMOXICILLIN
     Route: 048
  2. COCODAMOL [Suspect]
     Active Substance: ACETAMINOPHEN\CODEINE PHOSPHATE
     Indication: LARYNGITIS
     Route: 048
     Dates: start: 20170405, end: 20170406

REACTIONS (2)
  - Dermatitis allergic [Recovered/Resolved]
  - Dizziness [Recovered/Resolved]
